FAERS Safety Report 7129229-9 (Version None)
Quarter: 2010Q4

REPORT INFORMATION
  Report Type: 
  Country: None (occurrence: None)
  Receive Date: 20101116
  Receipt Date: 20101108
  Transmission Date: 20110411
  Serious: Yes (Other)
  Sender: FDA-Public Use
  Company Number: 2010SP054678

PATIENT
  Sex: Female

DRUGS (1)
  1. ASMANEX TWISTHALER [Suspect]
     Indication: PRODUCT USED FOR UNKNOWN INDICATION
     Dosage: 2 DF; BID;

REACTIONS (4)
  - CONDITION AGGRAVATED [None]
  - DRUG DOSE OMISSION [None]
  - PRODUCT QUALITY ISSUE [None]
  - UNEVALUABLE EVENT [None]
